FAERS Safety Report 13331991 (Version 1)
Quarter: 2017Q1

REPORT INFORMATION
  Report Type: Spontaneous
  Country: US (occurrence: US)
  Receive Date: 20170314
  Receipt Date: 20170314
  Transmission Date: 20170428
  Serious: No
  Sender: FDA-Public Use
  Company Number: US-JNJFOC-20170214941

PATIENT
  Sex: Female

DRUGS (2)
  1. TYLENOL EXTRA STRENGTH [Suspect]
     Active Substance: ACETAMINOPHEN
     Indication: HEADACHE
     Dosage: 1-2 CAPLETS, EVERY OTHER DAY, 2X PER DAY, FOR 2 WEEKS
     Route: 048
     Dates: end: 20170214
  2. TYLENOL EXTRA STRENGTH [Suspect]
     Active Substance: ACETAMINOPHEN
     Indication: TOOTHACHE
     Dosage: 1-2 CAPLETS, EVERY OTHER DAY, 2X PER DAY, FOR 2 WEEKS
     Route: 048
     Dates: end: 20170214

REACTIONS (2)
  - Drug ineffective [Unknown]
  - Inappropriate schedule of drug administration [Unknown]
